FAERS Safety Report 7067517-5 (Version None)
Quarter: 2010Q4

REPORT INFORMATION
  Report Type: 
  Country: None (occurrence: None)
  Receive Date: 20101028
  Receipt Date: 20101019
  Transmission Date: 20110411
  Serious: Yes (Other)
  Sender: FDA-Public Use
  Company Number: TW-JNJFOC-20101005318

PATIENT
  Age: 8 Year
  Sex: Male
  Weight: 25 kg

DRUGS (3)
  1. METHYLPHENIDATE [Suspect]
     Indication: ATTENTION DEFICIT/HYPERACTIVITY DISORDER
     Dosage: FOR TWO WEEKS
     Route: 048
  2. METHYLPHENIDATE [Suspect]
     Route: 048
  3. METHYLPHENIDATE [Suspect]
     Dosage: FIRST 2 WEEKS
     Route: 065

REACTIONS (1)
  - MIXED INCONTINENCE [None]
